FAERS Safety Report 9669832 (Version 1)
Quarter: 2013Q4

REPORT INFORMATION
  Report Type: Spontaneous
  Country: US (occurrence: None)
  Receive Date: 20131104
  Receipt Date: 20131104
  Transmission Date: 20140711
  Serious: No
  Sender: FDA-Public Use
  Company Number: None

PATIENT
  Age: 70 Year
  Sex: Male
  Weight: 108.2 kg

DRUGS (1)
  1. AMOXICILLIN [Suspect]
     Route: 048
     Dates: start: 20131023, end: 20131029

REACTIONS (3)
  - Rash [None]
  - Urticaria [None]
  - Pruritus [None]
